FAERS Safety Report 9724508 (Version 4)
Quarter: 2014Q3

REPORT INFORMATION
  Report Type: Report from Study
  Country: CA (occurrence: CA)
  Receive Date: 20131202
  Receipt Date: 20140825
  Transmission Date: 20150326
  Serious: Yes (Death, Hospitalization)
  Sender: FDA-Public Use
  Company Number: CA-PFIZER INC-2013337827

PATIENT
  Age: 64 Year
  Sex: Male

DRUGS (47)
  1. POTASSIUM CHLORIDE. [Concomitant]
     Active Substance: POTASSIUM CHLORIDE
  2. VERSED [Concomitant]
     Active Substance: MIDAZOLAM HYDROCHLORIDE
     Dosage: UNK
  3. IRINOTECAN HCL [Suspect]
     Active Substance: IRINOTECAN HYDROCHLORIDE
     Indication: COLORECTAL CANCER
     Dosage: 180 MG/M2 (280MG) EVERY 2 WEEKS
     Route: 042
     Dates: start: 20130730
  4. BMS-906024 [Suspect]
     Active Substance: INVESTIGATIONAL PRODUCT
     Dosage: 2.4 MG, WEEKLY
     Route: 042
     Dates: start: 20130924, end: 20131022
  5. PROCHLORPERAZINE. [Concomitant]
     Active Substance: PROCHLORPERAZINE
     Dosage: UNK
     Dates: start: 20130730, end: 20131022
  6. AMOXICILLIN. [Concomitant]
     Active Substance: AMOXICILLIN
     Dosage: UNK
     Dates: start: 20130906
  7. DALTEPARIN [Concomitant]
     Active Substance: DALTEPARIN
  8. MIDAZOLAM [Concomitant]
     Active Substance: MIDAZOLAM\MIDAZOLAM HYDROCHLORIDE
  9. FLUOROURACIL. [Suspect]
     Active Substance: FLUOROURACIL
     Indication: COLORECTAL CANCER
     Dosage: 400 MG/M2 (600MG) EVERY 2 WEEKS
     Route: 040
     Dates: start: 20130730
  10. TRAZODONE HYDROCHLORIDE. [Concomitant]
     Active Substance: TRAZODONE HYDROCHLORIDE
     Dosage: UNK
     Dates: start: 201108
  11. LOMOTIL [Concomitant]
     Active Substance: ATROPINE SULFATE\DIPHENOXYLATE HYDROCHLORIDE
     Dosage: UNK
     Dates: start: 201310
  12. METOCLOPRAMIDE. [Concomitant]
     Active Substance: METOCLOPRAMIDE
     Dosage: UNK
     Dates: start: 20130730
  13. HYDROMORPHONE [Concomitant]
     Active Substance: HYDROMORPHONE
  14. SULCRATE [Concomitant]
     Active Substance: SUCRALFATE
  15. GLICLAZIDE [Concomitant]
     Active Substance: GLICLAZIDE
     Dosage: UNK
     Dates: start: 201105
  16. MAGNESIUM OXIDE. [Concomitant]
     Active Substance: MAGNESIUM OXIDE
     Dosage: UNK
     Dates: start: 20130813
  17. SLOW-K [Concomitant]
     Active Substance: POTASSIUM CHLORIDE
  18. FLUOROURACIL. [Suspect]
     Active Substance: FLUOROURACIL
     Dosage: 2400 MG/M2 (3650 MG), EVERY 2 WEEKS
     Route: 042
     Dates: start: 20130730
  19. FLUOROURACIL. [Suspect]
     Active Substance: FLUOROURACIL
     Dosage: 320 MG/M2, CYCLIC, EVERY 2 WEEKS
     Route: 040
     Dates: start: 20130924, end: 20131022
  20. BMS-906024 [Suspect]
     Active Substance: INVESTIGATIONAL PRODUCT
     Indication: COLORECTAL CANCER
     Dosage: 4 MG, WEEKLY
     Route: 042
     Dates: start: 20130813
  21. DEXAMETHASONE. [Suspect]
     Active Substance: DEXAMETHASONE
     Indication: PREMEDICATION
     Dosage: 1 DF, CYCLIC
     Route: 048
     Dates: start: 20130730, end: 20131022
  22. SUCRALFATE. [Concomitant]
     Active Substance: SUCRALFATE
     Dosage: UNK
     Dates: start: 20130730, end: 20131022
  23. ASA [Concomitant]
     Active Substance: ASPIRIN
     Dosage: UNK
     Dates: start: 200010
  24. LORAZEPAM. [Concomitant]
     Active Substance: LORAZEPAM
     Dosage: UNK
     Dates: start: 199511
  25. STATEX [Concomitant]
     Active Substance: MORPHINE SULFATE
     Dosage: UNK
     Dates: start: 201009
  26. ATROPINE W/DIPHENOXYLATE [Concomitant]
     Active Substance: ATROPINE\DIPHENOXYLATE
  27. NYSTATIN. [Concomitant]
     Active Substance: NYSTATIN
     Dosage: UNK
     Dates: start: 20130903
  28. LEUCOVORIN [Suspect]
     Active Substance: LEUCOVORIN
     Indication: COLORECTAL CANCER
     Dosage: 760 MG, EVERY 2 WEEK (1/2 WEEK)
     Route: 042
     Dates: start: 20130730, end: 20131022
  29. DIPHENHYDRAMINE [Suspect]
     Active Substance: DIPHENHYDRAMINE
     Indication: PREMEDICATION
     Dosage: 50 MG, CYCLIC
     Route: 048
     Dates: start: 20130813, end: 20131022
  30. ONDANSETRON [Concomitant]
     Active Substance: ONDANSETRON
     Dosage: UNK
     Dates: start: 20130730, end: 20131022
  31. METFORMIN [Concomitant]
     Active Substance: METFORMIN HYDROCHLORIDE
     Dosage: UNK
     Dates: start: 201105
  32. AMITRIPTYLINE [Concomitant]
     Active Substance: AMITRIPTYLINE
     Dosage: UNK
     Dates: start: 201305
  33. NOZINAN [Concomitant]
     Active Substance: LEVOMEPROMAZINE
  34. ACETAMINOPHEN. [Concomitant]
     Active Substance: ACETAMINOPHEN
  35. FUROSEMIDE. [Concomitant]
     Active Substance: FUROSEMIDE
  36. FLUOROURACIL. [Suspect]
     Active Substance: FLUOROURACIL
     Dosage: 2000 MG/M2, CYCLIC, EVERY 2 WEEKS
     Route: 042
     Dates: start: 20130924, end: 20131022
  37. LOPERAMIDE [Suspect]
     Active Substance: LOPERAMIDE
     Indication: PREMEDICATION
     Dosage: 2 MG, CYCLIC
     Route: 048
     Dates: start: 20130730, end: 20131022
  38. RANITIDINE [Suspect]
     Active Substance: RANITIDINE\RANITIDINE HYDROCHLORIDE
     Indication: COLORECTAL CANCER
     Dosage: 150 MG, CYCLIC
     Route: 048
     Dates: start: 20130813
  39. ATROPINE SULFATE. [Concomitant]
     Active Substance: ATROPINE SULFATE
     Dosage: UNK
     Dates: start: 20130730, end: 20131022
  40. PANTOPRAZOLE [Concomitant]
     Active Substance: PANTOPRAZOLE SODIUM
     Dosage: UNK
     Dates: start: 200107
  41. SERTRALINE [Concomitant]
     Active Substance: SERTRALINE HYDROCHLORIDE
     Dosage: UNK
     Dates: start: 199511
  42. K-PHOS [Concomitant]
     Active Substance: POTASSIUM PHOSPHATE, MONOBASIC
     Dosage: UNK
     Dates: start: 20130820
  43. SCOPOLAMINE [Concomitant]
     Active Substance: SCOPOLAMINE
  44. PIPERACILLIN/TAZOBACTAM [Concomitant]
  45. IRINOTECAN HCL [Suspect]
     Active Substance: IRINOTECAN HYDROCHLORIDE
     Dosage: 150 MG/M2, CYCLIC, EVERY 2 WEEKS
     Route: 042
     Dates: start: 20130924, end: 20131022
  46. HYDROCODONE [Concomitant]
     Active Substance: HYDROCODONE
     Dosage: UNK
     Dates: start: 20130831
  47. VANCOMYCIN [Concomitant]
     Active Substance: VANCOMYCIN

REACTIONS (3)
  - Lung infection [Fatal]
  - Disease progression [Fatal]
  - Colorectal cancer [Fatal]

NARRATIVE: CASE EVENT DATE: 20131101
